FAERS Safety Report 10611226 (Version 1)
Quarter: 2014Q4

REPORT INFORMATION
  Report Type: Spontaneous
  Country: US (occurrence: US)
  Receive Date: 20141126
  Receipt Date: 20141126
  Transmission Date: 20150529
  Serious: No
  Sender: FDA-Public Use
  Company Number: US-BAYER-2014-175071

PATIENT
  Age: 76 Year
  Sex: Female
  Weight: 96.15 kg

DRUGS (2)
  1. ALEVE [Suspect]
     Active Substance: NAPROXEN SODIUM
     Indication: ARTHRITIS
     Dosage: 1 DF, PRN
     Route: 048
  2. LIDOCAINE. [Concomitant]
     Active Substance: LIDOCAINE
     Dosage: UNK

REACTIONS (1)
  - Expired product administered [None]

NARRATIVE: CASE EVENT DATE: 20141125
